FAERS Safety Report 19499434 (Version 2)
Quarter: 2021Q3

REPORT INFORMATION
  Report Type: Report from Study
  Country: CZ (occurrence: CZ)
  Receive Date: 20210706
  Receipt Date: 20210712
  Transmission Date: 20211014
  Serious: Yes (Hospitalization)
  Sender: FDA-Public Use
  Company Number: CZ-GLAXOSMITHKLINE-CZ2021GSK000002

PATIENT
  Age: 73 Year
  Sex: Female

DRUGS (11)
  1. BELANTAMAB MAFODOTIN. [Suspect]
     Active Substance: BELANTAMAB MAFODOTIN
     Indication: PLASMA CELL MYELOMA
     Dosage: 2.5 MG/KG, CYC, Q4WEEKS, DAY 1 OF 28 DAY CYCLE
     Route: 042
  2. BONDRONAT [Concomitant]
     Active Substance: IBANDRONATE SODIUM
     Dosage: 1 APPLICATION, QM
     Route: 042
     Dates: start: 20201221
  3. PURINOL [Concomitant]
     Dosage: 300 MG, QD
     Route: 048
     Dates: start: 202012
  4. ZOVIRAX [Concomitant]
     Active Substance: ACYCLOVIR
     Indication: ANTIVIRAL PROPHYLAXIS
     Dosage: 400 MG, QD
     Route: 048
     Dates: start: 202012
  5. POMALIDOMIDE [Suspect]
     Active Substance: POMALIDOMIDE
     Indication: PLASMA CELL MYELOMA
     Dosage: 4 MG, DAYS 1?21 OF 28 DAYS CYCLE
     Route: 048
  6. HELICID [Concomitant]
     Active Substance: OMEPRAZOLE
     Indication: PROPHYLAXIS
     Dosage: 20 MG, QD
     Route: 048
     Dates: start: 202012
  7. CIPRALEX [Concomitant]
     Active Substance: ESCITALOPRAM OXALATE
     Indication: PSYCHIATRIC DISORDER PROPHYLAXIS
     Dosage: 20 MG, QD
     Route: 048
     Dates: start: 202101
  8. NITRESAN [Concomitant]
     Active Substance: NITRENDIPINE
     Dosage: 0.5 MG, BID
     Route: 048
     Dates: start: 202101
  9. DEXAMETHASONE NON GSK [Suspect]
     Active Substance: DEXAMETHASONE
     Indication: PLASMA CELL MYELOMA
     Dosage: 40 MG, DAYS 1, 8, 15 AND 22 OF 28 DAYS CYCLE
     Route: 048
  10. HELICID [Concomitant]
     Active Substance: OMEPRAZOLE
     Dosage: 1 AMPULE, QM
     Route: 042
     Dates: start: 20210629
  11. BISEPTOL [Concomitant]
     Active Substance: SULFAMETHOXAZOLE\TRIMETHOPRIM
     Indication: ANTIBIOTIC PROPHYLAXIS
     Dosage: 480 MG, QD
     Route: 048
     Dates: start: 202012

REACTIONS (1)
  - Pleural effusion [Recovered/Resolved]

NARRATIVE: CASE EVENT DATE: 20210629
